FAERS Safety Report 11249588 (Version 1)
Quarter: 2015Q3

REPORT INFORMATION
  Report Type: Spontaneous
  Country: US (occurrence: US)
  Receive Date: 20150708
  Receipt Date: 20150708
  Transmission Date: 20151125
  Serious: Yes (Other)
  Sender: FDA-Public Use
  Company Number: US-ELI_LILLY_AND_COMPANY-US201008001400

PATIENT
  Age: 79 Year
  Sex: Male
  Weight: 92.52 kg

DRUGS (21)
  1. ALIMTA [Suspect]
     Active Substance: PEMETREXED DISODIUM
     Indication: LUNG ADENOCARCINOMA
     Dosage: 1100 MG, UNK
     Dates: start: 20100628
  2. VITAMIN D [Concomitant]
     Active Substance: CHOLECALCIFEROL
  3. ASPIRIN. [Concomitant]
     Active Substance: ASPIRIN
  4. TRICOR [Concomitant]
     Active Substance: FENOFIBRATE
  5. PROSCAR [Concomitant]
     Active Substance: FINASTERIDE
  6. NASONEX [Concomitant]
     Active Substance: MOMETASONE FUROATE
  7. MIRAPEX [Concomitant]
     Active Substance: PRAMIPEXOLE DIHYDROCHLORIDE
  8. PROTONIX [Concomitant]
     Active Substance: PANTOPRAZOLE SODIUM
  9. MUCINEX [Concomitant]
     Active Substance: GUAIFENESIN
  10. CARBOPLATIN. [Concomitant]
     Active Substance: CARBOPLATIN
     Indication: ADENOCARCINOMA
     Dosage: 400 MG, UNK
     Dates: start: 20100628
  11. FLOMAX [Concomitant]
     Active Substance: TAMSULOSIN HYDROCHLORIDE
  12. SPIRIVA [Concomitant]
     Active Substance: TIOTROPIUM BROMIDE MONOHYDRATE
  13. FOLATE [Concomitant]
     Active Substance: FOLATE SODIUM
  14. NIASPAN [Concomitant]
     Active Substance: NIACIN
  15. SYNTHROID [Concomitant]
     Active Substance: LEVOTHYROXINE SODIUM
  16. VITAMIN C [Concomitant]
     Active Substance: ASCORBIC ACID
  17. VITAMIN B12 [Concomitant]
     Active Substance: CYANOCOBALAMIN
  18. SYMBICORT [Concomitant]
     Active Substance: BUDESONIDE\FORMOTEROL FUMARATE DIHYDRATE
  19. CALCIUM [Concomitant]
     Active Substance: CALCIUM
  20. PROVIGIL [Concomitant]
     Active Substance: MODAFINIL
  21. ZETIA [Concomitant]
     Active Substance: EZETIMIBE

REACTIONS (2)
  - Pancytopenia [Unknown]
  - Photosensitivity reaction [Recovered/Resolved]
